FAERS Safety Report 6191169-X (Version None)
Quarter: 2009Q2

REPORT INFORMATION
  Report Type: 
  Country: None (occurrence: None)
  Receive Date: 20090515
  Receipt Date: 20090506
  Transmission Date: 20091009
  Serious: Yes (Hospitalization)
  Sender: FDA-Public Use
  Company Number: FR-WYE-G03076309

PATIENT
  Sex: Female
  Weight: 89 kg

DRUGS (8)
  1. TORISEL [Suspect]
     Indication: METASTATIC RENAL CELL CARCINOMA
     Route: 042
     Dates: start: 20081121, end: 20090123
  2. OXYCONTIN [Concomitant]
     Indication: BONE PAIN
     Dosage: UNKNOWN
     Route: 048
     Dates: start: 20081101
  3. OLMESARTAN [Concomitant]
     Indication: HYPERTENSION
     Dosage: UNKNOWN
  4. MUCOMYST [Concomitant]
     Dosage: UNKNOWN
  5. ZOLPIDEM [Concomitant]
     Dosage: UNKNOWN
  6. VOGALENE [Concomitant]
     Dosage: UNKNOWN
  7. AVASTIN [Suspect]
     Indication: METASTATIC RENAL CELL CARCINOMA
     Route: 042
     Dates: start: 20081121
  8. DI-ANTALVIC [Concomitant]
     Indication: BONE PAIN
     Dosage: UNKNOWN
     Route: 048
     Dates: start: 20081201

REACTIONS (1)
  - ALTERED STATE OF CONSCIOUSNESS [None]
